FAERS Safety Report 5105674-8 (Version None)
Quarter: 2006Q3

REPORT INFORMATION
  Report Type: 
  Country: None (occurrence: None)
  Receive Date: 20060915
  Receipt Date: 20060828
  Transmission Date: 20061208
  Serious: Yes (Hospitalization, Other)
  Sender: FDA-Public Use
  Company Number: 2006UW16950

PATIENT
  Age: 47 Year
  Sex: Female

DRUGS (10)
  1. PULMICORT RESPULES [Suspect]
     Indication: SINUSITIS
     Route: 055
     Dates: start: 20040101
  2. PULMICORT RESPULES [Suspect]
     Indication: ASTHMA
     Route: 055
     Dates: start: 20040101
  3. PATANOL [Concomitant]
  4. SINGULAIR [Concomitant]
  5. ALBUTEROL [Concomitant]
  6. ALLERGY SHOTS [Concomitant]
     Route: 023
  7. ALLEGRA [Concomitant]
  8. HYDROCORTISONE [Concomitant]
     Route: 042
     Dates: start: 20040501, end: 20040501
  9. PREDNISONE TAB [Concomitant]
     Route: 048
  10. FLOVENT [Concomitant]

REACTIONS (1)
  - OSTEONECROSIS [None]
